FAERS Safety Report 24580455 (Version 2)
Quarter: 2024Q4

REPORT INFORMATION
  Report Type: Spontaneous
  Country: US (occurrence: US)
  Receive Date: 20241105
  Receipt Date: 20241128
  Transmission Date: 20250114
  Serious: Yes (Life-Threatening, Hospitalization, Other)
  Sender: PFIZER
  Company Number: US-PFIZER INC-PV202400141609

PATIENT
  Age: 68 Year
  Sex: Male
  Weight: 100 kg

DRUGS (5)
  1. HEPARIN SODIUM [Suspect]
     Active Substance: HEPARIN SODIUM
     Indication: Cardiac failure chronic
     Dosage: 300 IU/KG; TOTAL 30000 IU, INFUSION 10:03 AM
     Route: 042
  2. HEPARIN SODIUM [Suspect]
     Active Substance: HEPARIN SODIUM
     Dosage: 20000 ADDITIONAL UNITS 10:13 AM
     Route: 042
  3. HEPARIN SODIUM [Suspect]
     Active Substance: HEPARIN SODIUM
     Dosage: 20000 UNITS 10:30 AM
     Route: 042
  4. HEPARIN SODIUM [Suspect]
     Active Substance: HEPARIN SODIUM
     Dosage: 10000 UNITS
     Route: 042
  5. WARFARIN [Suspect]
     Active Substance: WARFARIN
     Indication: Cardiac failure chronic
     Dosage: UNK
     Route: 048

REACTIONS (1)
  - Heparin resistance [Not Recovered/Not Resolved]
